FAERS Safety Report 11387369 (Version 1)
Quarter: 2015Q3

REPORT INFORMATION
  Report Type: Report from Study
  Country: US (occurrence: US)
  Receive Date: 20150817
  Receipt Date: 20150817
  Transmission Date: 20151125
  Serious: Yes (Hospitalization)
  Sender: FDA-Public Use
  Company Number: US-BAYER-2015-397187

PATIENT
  Age: 55 Year
  Sex: Male

DRUGS (1)
  1. NEXAVAR [Suspect]
     Active Substance: SORAFENIB
     Indication: HEPATOCELLULAR CARCINOMA
     Dosage: 200 MG, BID
     Route: 048
     Dates: start: 20150723, end: 20150728

REACTIONS (11)
  - Hypotension [None]
  - Decreased appetite [None]
  - Blood glucose decreased [None]
  - Pain in extremity [None]
  - Vomiting [None]
  - Weight decreased [None]
  - Lower extremity mass [None]
  - Mass [None]
  - Oedema peripheral [None]
  - Abdominal pain [None]
  - Back pain [None]

NARRATIVE: CASE EVENT DATE: 2015
